FAERS Safety Report 5532325-0 (Version None)
Quarter: 2007Q4

REPORT INFORMATION
  Report Type: 
  Country: None (occurrence: None)
  Receive Date: 20071203
  Receipt Date: 20071121
  Transmission Date: 20080405
  Serious: Yes (Hospitalization)
  Sender: FDA-Public Use
  Company Number: US-ELI_LILLY_AND_COMPANY-US200711006525

PATIENT
  Age: 41 Year
  Sex: Male

DRUGS (7)
  1. CYMBALTA [Suspect]
     Dosage: 30 MG, DAILY (1/D)
     Dates: start: 20071024, end: 20070101
  2. PREVACID [Concomitant]
     Dosage: 30 MG, DAILY (1/D)
  3. FAMOTIDINE [Concomitant]
     Dosage: 20 MG, DAILY (1/D)
  4. LORATADINE [Concomitant]
     Dosage: 10 MG, DAILY (1/D)
  5. ZOLPIDEM TARTRATE [Concomitant]
     Dosage: 10 MG, EACH EVENING
  6. HYDROCODONE BITARTRATE [Concomitant]
  7. IBUPROFEN [Concomitant]
     Dosage: UNK, 2/D

REACTIONS (6)
  - ACIDOSIS [None]
  - ANXIETY [None]
  - DEHYDRATION [None]
  - DIARRHOEA [None]
  - HEADACHE [None]
  - NAUSEA [None]
